FAERS Safety Report 9173798 (Version 2)
Quarter: 2013Q2

REPORT INFORMATION
  Report Type: Spontaneous
  Country: US (occurrence: US)
  Receive Date: 20130320
  Receipt Date: 20130419
  Transmission Date: 20140414
  Serious: Yes (Other)
  Sender: FDA-Public Use
  Company Number: US-SANOFI-AVENTIS-2013SA025547

PATIENT
  Age: 53 Year
  Sex: Male

DRUGS (1)
  1. MULTAQ [Suspect]
     Indication: ATRIAL FIBRILLATION
     Route: 048
     Dates: start: 2011

REACTIONS (4)
  - Gallbladder disorder [Recovered/Resolved]
  - Back pain [Not Recovered/Not Resolved]
  - Hypersensitivity [Unknown]
  - Throat irritation [Unknown]
